FAERS Safety Report 7266410-2 (Version None)
Quarter: 2011Q1

REPORT INFORMATION
  Report Type: 
  Country: None (occurrence: None)
  Receive Date: 20110131
  Receipt Date: 20110124
  Transmission Date: 20110831
  Serious: Yes (Hospitalization)
  Sender: FDA-Public Use
  Company Number: SE-PFIZER INC-2011016178

PATIENT
  Age: 62 Year
  Sex: Male

DRUGS (18)
  1. NITROLINGUAL [Concomitant]
     Dosage: UNK
  2. ALVEDON [Concomitant]
     Dosage: UNK
  3. SELOKEN ZOC [Concomitant]
     Dosage: UNK
  4. LEVOTHYROXINE SODIUM [Concomitant]
     Dosage: UNK
  5. RAMIPRIL [Concomitant]
     Dosage: UNK
  6. SIMVASTATIN [Concomitant]
     Dosage: UNK
  7. WARAN [Concomitant]
     Dosage: UNK
  8. KALEORID [Concomitant]
     Dosage: UNK
  9. DIAZEPAM [Concomitant]
     Dosage: UNK
  10. ACETAMINOPHEN W/ CODEINE [Concomitant]
     Dosage: UNK
  11. PRO-EPANUTIN [Suspect]
     Indication: GRAND MAL CONVULSION
     Dosage: 1050 MG, UNK
     Route: 042
     Dates: start: 20101201, end: 20101201
  12. TROMBYL [Concomitant]
     Dosage: UNK
  13. ERGENYL - SLOW RELEASE [Concomitant]
     Indication: EPILEPSY
     Dosage: UNK
  14. KEPPRA [Concomitant]
     Indication: EPILEPSY
     Dosage: UNK
  15. AMLODIPINE [Concomitant]
     Dosage: UNK
  16. LANSOPRAZOLE [Concomitant]
     Dosage: UNK
  17. ALLOPURINOL [Concomitant]
     Dosage: UNK
  18. IMDUR [Concomitant]
     Dosage: 60 MG, UNK

REACTIONS (1)
  - CIRCULATORY COLLAPSE [None]
